FAERS Safety Report 5867264-9 (Version None)
Quarter: 2008Q3

REPORT INFORMATION
  Report Type: 
  Country: None (occurrence: None)
  Receive Date: 20080829
  Receipt Date: 20080829
  Transmission Date: 20090109
  Serious: Yes (Hospitalization)
  Sender: FDA-Public Use
  Company Number: None

PATIENT
  Sex: Female
  Weight: 57.7 kg

DRUGS (4)
  1. FLUOROURACIL [Suspect]
     Dosage: 70439 MG
     Dates: end: 20080826
  2. BEVACIZUMAB (RHUMAB VEGF) [Suspect]
     Dosage: 4930 MG
     Dates: end: 20080826
  3. LEUCOVORIN CALCIUM [Suspect]
     Dosage: 13460 MG
     Dates: end: 20080826
  4. ELOXATIN [Suspect]
     Dosage: 1400 MG
     Dates: end: 20080507

REACTIONS (11)
  - BLOOD SODIUM DECREASED [None]
  - CONSTIPATION [None]
  - DIARRHOEA [None]
  - DYSURIA [None]
  - FATIGUE [None]
  - HYPOPHAGIA [None]
  - MALAISE [None]
  - NEUTROPHIL COUNT INCREASED [None]
  - URINARY TRACT INFECTION [None]
  - VOMITING [None]
  - WHITE BLOOD CELL COUNT INCREASED [None]
